FAERS Safety Report 16015203 (Version 31)
Quarter: 2021Q3

REPORT INFORMATION
  Report Type: Spontaneous
  Country: CA (occurrence: CA)
  Receive Date: 20190228
  Receipt Date: 20210922
  Transmission Date: 20211014
  Serious: Yes (Hospitalization, Other)
  Sender: FDA-Public Use
  Company Number: CA-CELLTRION INC.-2019CA019030

PATIENT

DRUGS (55)
  1. INFLECTRA [Suspect]
     Active Substance: INFLIXIMAB-DYYB
     Dosage: 400 MG, 0,2,6 WEEKS, THEN EVERY 8 WEEKS
     Route: 042
     Dates: start: 20190319
  2. INFLECTRA [Suspect]
     Active Substance: INFLIXIMAB-DYYB
     Dosage: 400 MG, 0,2,6 WEEKS, THEN EVERY 8 WEEKS
     Route: 042
     Dates: start: 20190514
  3. INFLECTRA [Suspect]
     Active Substance: INFLIXIMAB-DYYB
     Dosage: 800 MG AT 0, 2, 6 WEEKS, THEN EVERY 4 WEEKS (RE?INDUCTION)
     Route: 042
     Dates: start: 20200131
  4. INFLECTRA [Suspect]
     Active Substance: INFLIXIMAB-DYYB
     Dosage: 800 MG AT 0, 2, 6 WEEKS, THEN EVERY 4 WEEKS (RE?INDUCTION)
     Route: 042
     Dates: start: 20200708
  5. INFLECTRA [Suspect]
     Active Substance: INFLIXIMAB-DYYB
     Dosage: 800 MG AT 0, 2, 6 WEEKS, THEN EVERY 4 WEEKS (RE?INDUCTION)
     Route: 042
     Dates: start: 20200708
  6. INFLECTRA [Suspect]
     Active Substance: INFLIXIMAB-DYYB
     Dosage: 800 MG AT 0, 2, 6 WEEKS, THEN EVERY 4 WEEKS (RE?INDUCTION)
     Route: 042
     Dates: start: 20200708
  7. INFLECTRA [Suspect]
     Active Substance: INFLIXIMAB-DYYB
     Dosage: 800 MG AT 0, 2, 6 WEEKS, THEN EVERY 4 WEEKS (RE?INDUCTION)
     Route: 042
     Dates: start: 20201127
  8. INFLECTRA [Suspect]
     Active Substance: INFLIXIMAB-DYYB
     Dosage: 900 MG EVERY 4 WEEKS
     Route: 042
     Dates: start: 20210519
  9. INFLECTRA [Suspect]
     Active Substance: INFLIXIMAB-DYYB
     Dosage: 800 MG AT 0, 2, 6 WEEKS, THEN EVERY 4 WEEKS (RE?INDUCTION)
     Route: 042
     Dates: start: 20200131
  10. INFLECTRA [Suspect]
     Active Substance: INFLIXIMAB-DYYB
     Dosage: 800 MG AT 0, 2, 6 WEEKS, THEN EVERY 4 WEEKS (RE?INDUCTION)
     Route: 042
     Dates: start: 20200414
  11. INFLECTRA [Suspect]
     Active Substance: INFLIXIMAB-DYYB
     Dosage: 800 MG AT 0, 2, 6 WEEKS, THEN EVERY 4 WEEKS (RE?INDUCTION)
     Route: 042
     Dates: start: 20200608
  12. INFLECTRA [Suspect]
     Active Substance: INFLIXIMAB-DYYB
     Dosage: 900 MG EVERY 4 WEEKS
     Route: 042
     Dates: start: 20210819, end: 20210901
  13. IMURAN [Concomitant]
     Active Substance: AZATHIOPRINE
     Dosage: 100 MG, UNK
     Route: 065
  14. INFLECTRA [Suspect]
     Active Substance: INFLIXIMAB-DYYB
     Dosage: 400 MG, 0,2,6 WEEKS, THEN EVERY 4 WEEKS
     Route: 042
     Dates: start: 20190703
  15. INFLECTRA [Suspect]
     Active Substance: INFLIXIMAB-DYYB
     Dosage: 400 MG, 0,2,6 WEEKS, THEN EVERY 4 WEEKS
     Route: 042
     Dates: start: 20200109, end: 20200109
  16. INFLECTRA [Suspect]
     Active Substance: INFLIXIMAB-DYYB
     Dosage: 800 MG AT 0, 2, 6 WEEKS, THEN EVERY 4 WEEKS (RE?INDUCTION)
     Route: 042
     Dates: start: 20200312
  17. INFLECTRA [Suspect]
     Active Substance: INFLIXIMAB-DYYB
     Dosage: 800 MG AT 0, 2, 6 WEEKS, THEN EVERY 4 WEEKS (RE?INDUCTION)
     Route: 042
     Dates: start: 20200708
  18. PANTOLOC [Concomitant]
     Active Substance: PANTOPRAZOLE SODIUM
     Dosage: 40 MG, DAILY
     Route: 065
  19. YASMIN [Concomitant]
     Active Substance: DROSPIRENONE\ETHINYL ESTRADIOL
     Dosage: UNK
     Route: 065
  20. INFLECTRA [Suspect]
     Active Substance: INFLIXIMAB-DYYB
     Indication: ANKYLOSING SPONDYLITIS
     Dosage: UNK
     Route: 042
     Dates: start: 20190220
  21. INFLECTRA [Suspect]
     Active Substance: INFLIXIMAB-DYYB
     Dosage: 800 MG AT 0, 2, 6 WEEKS, THEN EVERY 4 WEEKS (RE?INDUCTION)
     Route: 042
     Dates: start: 20201005
  22. INFLECTRA [Suspect]
     Active Substance: INFLIXIMAB-DYYB
     Dosage: 900 MG EVERY 4 WEEKS
     Route: 042
     Dates: start: 20210317
  23. INFLECTRA [Suspect]
     Active Substance: INFLIXIMAB-DYYB
     Dosage: 900 MG EVERY 4 WEEKS
     Route: 042
     Dates: start: 20210317
  24. INFLECTRA [Suspect]
     Active Substance: INFLIXIMAB-DYYB
     Dosage: 900 MG EVERY 4 WEEKS
     Route: 042
     Dates: start: 20210413
  25. INFLECTRA [Suspect]
     Active Substance: INFLIXIMAB-DYYB
     Dosage: 800 MG AT 0, 2, 6 WEEKS, THEN EVERY 4 WEEKS (REINDUCTION)
     Route: 042
     Dates: start: 20200312
  26. INFLECTRA [Suspect]
     Active Substance: INFLIXIMAB-DYYB
     Dosage: 800 MG AT 0, 2, 6 WEEKS, THEN EVERY 4 WEEKS (RE?INDUCTION)
     Route: 042
     Dates: start: 20200810
  27. INFLECTRA [Suspect]
     Active Substance: INFLIXIMAB-DYYB
     Dosage: 800 MG AT 0, 2, 6 WEEKS, THEN EVERY 4 WEEKS (RE?INDUCTION)
     Route: 042
     Dates: start: 20201102
  28. INFLECTRA [Suspect]
     Active Substance: INFLIXIMAB-DYYB
     Dosage: 900 MG EVERY 4 WEEKS
     Route: 042
     Dates: start: 20210910
  29. PREDNISONE. [Concomitant]
     Active Substance: PREDNISONE
     Dosage: 40 MG TAPER
     Route: 065
  30. INFLECTRA [Suspect]
     Active Substance: INFLIXIMAB-DYYB
     Dosage: 400 MG, 0,2,6 WEEKS, THEN EVERY 4 WEEKS
     Route: 042
     Dates: start: 20190618, end: 20200109
  31. INFLECTRA [Suspect]
     Active Substance: INFLIXIMAB-DYYB
     Dosage: 400 MG, 0,2,6 WEEKS, THEN EVERY 4 WEEKS
     Route: 042
     Dates: start: 20190731
  32. INFLECTRA [Suspect]
     Active Substance: INFLIXIMAB-DYYB
     Dosage: 400 MG, 0,2,6 WEEKS, THEN EVERY 4 WEEKS
     Route: 042
     Dates: start: 20191021
  33. INFLECTRA [Suspect]
     Active Substance: INFLIXIMAB-DYYB
     Dosage: 800 MG AT 0, 2, 6 WEEKS, THEN EVERY 4 WEEKS (RE?INDUCTION)
     Route: 042
     Dates: start: 20200131
  34. INFLECTRA [Suspect]
     Active Substance: INFLIXIMAB-DYYB
     Dosage: 800 MG AT 0, 2, 6 WEEKS, THEN EVERY 4 WEEKS (RE?INDUCTION)
     Route: 042
     Dates: start: 20200131
  35. INFLECTRA [Suspect]
     Active Substance: INFLIXIMAB-DYYB
     Dosage: 800 MG AT 0, 2, 6 WEEKS, THEN EVERY 4 WEEKS (RE?INDUCTION)
     Route: 042
     Dates: start: 20201102
  36. INFLECTRA [Suspect]
     Active Substance: INFLIXIMAB-DYYB
     Dosage: 900 MG EVERY 4 WEEKS
     Route: 042
     Dates: start: 20210217
  37. INFLECTRA [Suspect]
     Active Substance: INFLIXIMAB-DYYB
     Dosage: 900 MG EVERY 4 WEEKS
     Route: 042
     Dates: start: 20210317
  38. ASACOL [Concomitant]
     Active Substance: MESALAMINE
     Dosage: 4200 MG, DAILY
     Route: 065
  39. INFLECTRA [Suspect]
     Active Substance: INFLIXIMAB-DYYB
     Indication: COLITIS ULCERATIVE
     Dosage: 400 MG, 0,2,6 WEEKS, THEN EVERY 8 WEEKS
     Route: 042
     Dates: start: 20190131, end: 20190514
  40. INFLECTRA [Suspect]
     Active Substance: INFLIXIMAB-DYYB
     Dosage: UNK
     Route: 042
     Dates: start: 20190222
  41. INFLECTRA [Suspect]
     Active Substance: INFLIXIMAB-DYYB
     Dosage: 400 MG, 0,2,6 WEEKS, THEN EVERY 4 WEEKS
     Route: 042
     Dates: start: 20191213
  42. INFLECTRA [Suspect]
     Active Substance: INFLIXIMAB-DYYB
     Dosage: 800 MG AT 0, 2, 6 WEEKS, THEN EVERY 4 WEEKS (RE?INDUCTION)
     Route: 042
     Dates: start: 20200131, end: 20210118
  43. INFLECTRA [Suspect]
     Active Substance: INFLIXIMAB-DYYB
     Dosage: 800 MG AT 0, 2, 6 WEEKS, THEN EVERY 4 WEEKS (RE?INDUCTION)
     Route: 042
     Dates: start: 20200214
  44. INFLECTRA [Suspect]
     Active Substance: INFLIXIMAB-DYYB
     Dosage: 800 MG AT 0, 2, 6 WEEKS, THEN EVERY 4 WEEKS (RE?INDUCTION)
     Route: 042
     Dates: start: 20200810
  45. INFLECTRA [Suspect]
     Active Substance: INFLIXIMAB-DYYB
     Dosage: 800 MG AT 0, 2, 6 WEEKS, THEN EVERY 4 WEEKS (RE?INDUCTION)
     Route: 042
     Dates: start: 20200905
  46. INFLECTRA [Suspect]
     Active Substance: INFLIXIMAB-DYYB
     Dosage: 800 MG AT 0, 2, 6 WEEKS, THEN EVERY 4 WEEKS (RE?INDUCTION)
     Route: 042
     Dates: start: 20201005
  47. INFLECTRA [Suspect]
     Active Substance: INFLIXIMAB-DYYB
     Dosage: 800 MG AT 0, 2, 6 WEEKS, THEN EVERY 4 WEEKS (RE?INDUCTION)
     Route: 042
     Dates: start: 20201005
  48. INFLECTRA [Suspect]
     Active Substance: INFLIXIMAB-DYYB
     Dosage: 900 MG EVERY 4 WEEKS
     Route: 042
     Dates: start: 20210519
  49. INFLECTRA [Suspect]
     Active Substance: INFLIXIMAB-DYYB
     Dosage: 900 MG EVERY 4 WEEKS
     Route: 042
     Dates: start: 20210616
  50. INFLECTRA [Suspect]
     Active Substance: INFLIXIMAB-DYYB
     Dosage: 400 MG, 0,2,6 WEEKS, THEN EVERY 4 WEEKS
     Route: 042
     Dates: start: 20190731
  51. INFLECTRA [Suspect]
     Active Substance: INFLIXIMAB-DYYB
     Dosage: 400 MG, 0,2,6 WEEKS, THEN EVERY 4 WEEKS
     Route: 042
     Dates: start: 20190923
  52. INFLECTRA [Suspect]
     Active Substance: INFLIXIMAB-DYYB
     Dosage: 400 MG, 0,2,6 WEEKS, THEN EVERY 4 WEEKS
     Route: 042
     Dates: start: 20191119
  53. INFLECTRA [Suspect]
     Active Substance: INFLIXIMAB-DYYB
     Dosage: 800 MG AT 0, 2, 6 WEEKS, THEN EVERY 4 WEEKS (RE?INDUCTION)
     Route: 042
     Dates: start: 20200312
  54. INFLECTRA [Suspect]
     Active Substance: INFLIXIMAB-DYYB
     Dosage: 800 MG AT 0, 2, 6 WEEKS, THEN EVERY 4 WEEKS (RE?INDUCTION)
     Route: 042
     Dates: start: 20201102
  55. INFLECTRA [Suspect]
     Active Substance: INFLIXIMAB-DYYB
     Dosage: 900 MG EVERY 4 WEEKS
     Route: 042
     Dates: start: 20210317

REACTIONS (15)
  - Colitis ulcerative [Recovering/Resolving]
  - Mobility decreased [Unknown]
  - Arthralgia [Unknown]
  - Weight decreased [Unknown]
  - Maternal exposure during pregnancy [Unknown]
  - Arthritis [Recovering/Resolving]
  - Intentional product use issue [Unknown]
  - Fibromyalgia [Recovering/Resolving]
  - Inappropriate schedule of product administration [Unknown]
  - Condition aggravated [Recovering/Resolving]
  - Blood iron decreased [Unknown]
  - Therapeutic response shortened [Unknown]
  - Maternal exposure during pregnancy [Unknown]
  - Off label use [Unknown]
  - Off label use [Unknown]

NARRATIVE: CASE EVENT DATE: 20190213
